FAERS Safety Report 5675569-X (Version None)
Quarter: 2008Q1

REPORT INFORMATION
  Report Type: 
  Country: None (occurrence: None)
  Receive Date: 20080321
  Receipt Date: 20080318
  Transmission Date: 20080703
  Serious: Yes (Death, Disabling)
  Sender: FDA-Public Use
  Company Number: JP-JNJFOC-20080302681

PATIENT
  Age: 66 Year
  Sex: Male

DRUGS (8)
  1. ITRIZOLE [Suspect]
     Indication: PYREXIA
     Route: 048
  2. ITRIZOLE [Suspect]
     Indication: ORAL CANDIDIASIS
     Route: 048
  3. SEROQUEL [Concomitant]
     Indication: DEPRESSION
     Route: 048
  4. MAGNESIUM OXIDE [Concomitant]
     Indication: PROPHYLAXIS
     Route: 048
  5. ASPIRIN [Concomitant]
     Indication: CEREBRAL INFARCTION
     Route: 048
  6. UNASYN [Concomitant]
     Indication: BACTERAEMIA
     Route: 042
  7. DALACIN-S [Concomitant]
     Indication: BACTERAEMIA
     Route: 042
  8. ORGARAN [Concomitant]
     Indication: DISSEMINATED INTRAVASCULAR COAGULATION
     Route: 042

REACTIONS (3)
  - ADENOCARCINOMA [None]
  - BLOOD BILIRUBIN INCREASED [None]
  - RENAL IMPAIRMENT [None]
